FAERS Safety Report 20299789 (Version 1)
Quarter: 2022Q1

REPORT INFORMATION
  Report Type: Spontaneous
  Country: US (occurrence: US)
  Receive Date: 20220105
  Receipt Date: 20220105
  Transmission Date: 20220423
  Serious: No
  Sender: FDA-Public Use
  Company Number: US-SIGMAPHARM LABORATORIES, LLC-2020SIG00125

PATIENT
  Age: 38 Year
  Sex: Female
  Weight: 64.399 kg

DRUGS (7)
  1. LIOTHYRONINE SODIUM [Suspect]
     Active Substance: LIOTHYRONINE SODIUM
     Indication: Hypothyroidism
     Dosage: UNK
     Dates: start: 2015, end: 202012
  2. LIOTHYRONINE SODIUM [Suspect]
     Active Substance: LIOTHYRONINE SODIUM
     Dosage: 20 MCG, 2X/DAY
     Dates: start: 202012, end: 20201229
  3. COMPOUNDED NATURALLY DESSICATED THYROID T4/T3 [Concomitant]
     Dosage: 1 DOSAGE UNITS, 2X/DAY
  4. WOMENS MULTIVITAMIN DAILY [Concomitant]
     Dosage: UNK, 1X/DAY MIDDLE OF THE DAY
  5. PROBIOTICS NOS [Concomitant]
     Active Substance: PROBIOTICS NOS
     Dosage: UNK, 1X/DAY MIDDLE OF THE DAY
  6. FIBER PILLS [Concomitant]
     Dosage: UNK, 1X/DAY MIDDLE OF THE DAY
  7. VITAMIN D3 [Concomitant]
     Active Substance: CHOLECALCIFEROL
     Dosage: UNK, 1X/DAY MIDDLE OF THE DAY

REACTIONS (8)
  - Malaise [Recovered/Resolved]
  - Product quality issue [Recovered/Resolved]
  - Hyperthyroidism [Recovered/Resolved]
  - Chest discomfort [Recovered/Resolved]
  - Palpitations [Recovered/Resolved]
  - Headache [Recovered/Resolved]
  - Nausea [Recovered/Resolved]
  - Off label use [Recovered/Resolved]

NARRATIVE: CASE EVENT DATE: 20201201
